FAERS Safety Report 4288477-6 (Version None)
Quarter: 2004Q1

REPORT INFORMATION
  Report Type: 
  Country: None (occurrence: None)
  Receive Date: 20040205
  Receipt Date: 20040126
  Transmission Date: 20041129
  Serious: Yes (Hospitalization)
  Sender: FDA-Public Use
  Company Number: 200316463US

PATIENT
  Age: 85 Year
  Sex: Male
  Weight: 59 kg

DRUGS (14)
  1. NASACORT AQ [Suspect]
     Indication: NASAL CONGESTION
     Dosage: QPM  IN
     Dates: start: 20030606, end: 20030625
  2. TERAZOSIN HYDROCHLORIDE (HYTRIN) [Concomitant]
  3. IPRATROPIUM BROMIDE, SALBUTAMOL SULFATE (COMBIVENT) [Concomitant]
  4. ALBUTEROL [Concomitant]
  5. AZMACORT [Concomitant]
  6. LANOXIN [Concomitant]
  7. ASPIRIN [Concomitant]
  8. SALMETEROL XINAFOATE (SEREVENT) [Concomitant]
  9. IPRATROPIUM BROMIDE [Concomitant]
  10. QUININE SULFATE [Concomitant]
  11. PNEUMOCOCCAL VACCINE (PNEUMOVAX) [Concomitant]
  12. VITAMIN C [Concomitant]
  13. ALPHA GOLDENSEAL ROOT NOS [Concomitant]
  14. ECHINACEA EXTRACT [Concomitant]

REACTIONS (9)
  - AMNESIA [None]
  - CONTUSION [None]
  - ECCHYMOSIS [None]
  - FALL [None]
  - FEELING ABNORMAL [None]
  - HEAD INJURY [None]
  - LOSS OF CONSCIOUSNESS [None]
  - ORTHOSTATIC HYPOTENSION [None]
  - SYNCOPE [None]
